FAERS Safety Report 7007398-9 (Version None)
Quarter: 2010Q3

REPORT INFORMATION
  Report Type: 
  Country: None (occurrence: None)
  Receive Date: 20100922
  Receipt Date: 20100910
  Transmission Date: 20110219
  Serious: Yes (Other)
  Sender: FDA-Public Use
  Company Number: DE-PFIZER INC-2010114682

PATIENT
  Age: 40 Year
  Sex: Female

DRUGS (6)
  1. LYRICA [Suspect]
     Indication: NERVE BLOCK
     Dosage: 75 MG, 2X/DAY
  2. MUSARIL [Concomitant]
     Dosage: UNK
  3. PANTOPRAZOLE SODIUM [Concomitant]
     Dosage: UNK
  4. CELEBREX [Concomitant]
     Dosage: UNK
  5. TILIDINE [Concomitant]
     Dosage: UNK
  6. CLEXANE [Concomitant]

REACTIONS (2)
  - MAJOR DEPRESSION [None]
  - WITHDRAWAL SYNDROME [None]
